FAERS Safety Report 13457123 (Version 1)
Quarter: 2017Q2

REPORT INFORMATION
  Report Type: Spontaneous
  Country: CN (occurrence: CN)
  Receive Date: 20170419
  Receipt Date: 20170419
  Transmission Date: 20170830
  Serious: Yes (Other)
  Sender: FDA-Public Use
  Company Number: CN-009507513-1704CHN007563

PATIENT
  Age: 5 Year
  Weight: 25 kg

DRUGS (3)
  1. SINGULAIR [Suspect]
     Active Substance: MONTELUKAST SODIUM
     Indication: ASTHMA
     Dosage: 1 DF, QD
     Route: 048
     Dates: start: 20170204, end: 20170208
  2. AZITHROMYCIN ANHYDROUS. [Suspect]
     Active Substance: AZITHROMYCIN ANHYDROUS
     Indication: ASTHMA
     Dosage: 1 DF, QD
     Route: 048
     Dates: start: 20170204, end: 20170208
  3. SERETIDE [Suspect]
     Active Substance: FLUTICASONE PROPIONATE\SALMETEROL XINAFOATE
     Indication: ASTHMA
     Dosage: 1 PUFF, BID
     Route: 055
     Dates: start: 20170204, end: 20170224

REACTIONS (2)
  - Peritonsillar abscess [Not Recovered/Not Resolved]
  - Pharyngeal disorder [Not Recovered/Not Resolved]

NARRATIVE: CASE EVENT DATE: 20170208
